FAERS Safety Report 10237424 (Version 1)
Quarter: 2014Q2

REPORT INFORMATION
  Report Type: Report from Study
  Country: US (occurrence: US)
  Receive Date: 20140614
  Receipt Date: 20140614
  Transmission Date: 20141212
  Serious: Yes (Other)
  Sender: FDA-Public Use
  Company Number: US-ALEXION PHARMACEUTICALS INC.-A201402284

PATIENT
  Sex: 0

DRUGS (20)
  1. SOLIRIS [Suspect]
     Indication: PAROXYSMAL NOCTURNAL HAEMOGLOBINURIA
     Dosage: 900 MG, Q2W
     Route: 042
     Dates: start: 20140521
  2. ACTOSE [Concomitant]
     Indication: DIABETES MELLITUS
     Dosage: UNK, QD AND PRN
     Route: 048
     Dates: start: 20100101
  3. ALDARA [Concomitant]
     Indication: PRODUCT USED FOR UNKNOWN INDICATION
     Dosage: 1 APP TOPICALLY
     Route: 061
     Dates: start: 20140428
  4. ATROPINE W/DIPHENOXYLATE           /00034001/ [Concomitant]
     Indication: PRODUCT USED FOR UNKNOWN INDICATION
     Dosage: 0.25 TO 2.5 MG 2 TABS, QID
     Route: 065
     Dates: start: 20140428
  5. BISOPROLOL W/HYDROCHLOROTHIAZIDE   /06833601/ [Concomitant]
     Indication: DIURETIC THERAPY
     Dosage: 5-6.5 MG 1 TAB, QD
     Route: 048
     Dates: start: 20140428
  6. CIALIS [Concomitant]
     Indication: PRODUCT USED FOR UNKNOWN INDICATION
     Dosage: 05 MG, QD
     Route: 048
     Dates: start: 20140428
  7. ERGOCALCIFEROL [Concomitant]
     Indication: VITAMIN D
     Dosage: 1.25 MG, QW X 6 WEEKS
     Route: 065
     Dates: start: 20140428
  8. FOLIC ACID [Concomitant]
     Indication: PRODUCT USED FOR UNKNOWN INDICATION
     Dosage: 1 MG, QD
     Route: 048
     Dates: start: 20140428
  9. FOSAMAX [Concomitant]
     Indication: PRODUCT USED FOR UNKNOWN INDICATION
     Dosage: 70 MG, QW
     Route: 048
     Dates: start: 20140428
  10. MAG-OX [Concomitant]
     Indication: PRODUCT USED FOR UNKNOWN INDICATION
     Dosage: 400 MG, QD
     Route: 065
     Dates: start: 20140428
  11. NEXIUM                             /01479302/ [Concomitant]
     Indication: PRODUCT USED FOR UNKNOWN INDICATION
     Dosage: 40 MG, QD
     Route: 048
     Dates: start: 20140428
  12. OXYCODONE [Concomitant]
     Indication: PAIN MANAGEMENT
     Dosage: 30 MG, Q3HR PRN
     Route: 048
     Dates: start: 20140428
  13. OXYCODONE [Concomitant]
     Dosage: 15-30 MG Q 4 HRS PRN
     Route: 048
     Dates: start: 20140428
  14. OXYCONTIN [Concomitant]
     Indication: PAIN MANAGEMENT
     Dosage: 80 MG, 3 Q6H
     Route: 048
     Dates: start: 20140428
  15. POTASSIUM CHLORIDE [Concomitant]
     Indication: PRODUCT USED FOR UNKNOWN INDICATION
     Dosage: 20 MEQ TID X 2 DAYS, 20 MEQ BID X 5 DAYS
     Route: 065
     Dates: start: 20140428
  16. PREDNISONE [Concomitant]
     Indication: STEROID THERAPY
     Dosage: 20 MG, QD X 30 DAYS
     Route: 048
     Dates: start: 20140428
  17. PROMETHAZINE [Concomitant]
     Indication: NAUSEA
     Dosage: 25 MG, Q4-6 HRS PRN
     Route: 048
     Dates: start: 20140428
  18. PROMETHAZINE [Concomitant]
     Indication: VOMITING
  19. PERCOCET                           /00446701/ [Suspect]
     Indication: HEADACHE
     Dosage: 1 TAB AFTER EVERY 4 HOURS, PRN
     Route: 048
  20. PERCOCET                           /00446701/ [Suspect]
     Indication: TOOTHACHE

REACTIONS (3)
  - Cardiac flutter [Not Recovered/Not Resolved]
  - Toothache [Unknown]
  - Headache [Unknown]
